FAERS Safety Report 23232531 (Version 2)
Quarter: 2023Q4

REPORT INFORMATION
  Report Type: Report from Study
  Country: GB (occurrence: GB)
  Receive Date: 20231128
  Receipt Date: 20231214
  Transmission Date: 20240109
  Serious: Yes (Death)
  Sender: FDA-Public Use
  Company Number: GB-GRUNENTHAL-2023-306640

PATIENT
  Age: 65 Year
  Sex: Male

DRUGS (1)
  1. QUTENZA [Suspect]
     Active Substance: CAPSAICIN
     Indication: Neuropathy peripheral
     Dosage: 4 DOSAGE FORM, ONCE
     Route: 003

REACTIONS (1)
  - Death [Fatal]

NARRATIVE: CASE EVENT DATE: 20231118
